FAERS Safety Report 17508801 (Version 1)
Quarter: 2020Q1

REPORT INFORMATION
  Report Type: Spontaneous
  Country: US (occurrence: US)
  Receive Date: 20200225
  Receipt Date: 20200225
  Transmission Date: 20200409
  Serious: Yes (Hospitalization)
  Sender: FDA-Public Use
  Company Number: None

PATIENT
  Age: 82 Year
  Sex: Male
  Weight: 89.45 kg

DRUGS (3)
  1. DEXAMETHASONE. [Suspect]
     Active Substance: DEXAMETHASONE
     Dates: end: 20170721
  2. LENALIDOMIDE (CC-50130) [Suspect]
     Active Substance: LENALIDOMIDE
     Dates: end: 20170723
  3. VELCADE [Suspect]
     Active Substance: BORTEZOMIB
     Dates: end: 20170720

REACTIONS (8)
  - Haemoptysis [None]
  - Speech disorder [None]
  - Secretion discharge [None]
  - Platelet count decreased [None]
  - Loss of consciousness [None]
  - Diarrhoea [None]
  - Fatigue [None]
  - Cough [None]

NARRATIVE: CASE EVENT DATE: 20170723
